FAERS Safety Report 4512760-X (Version None)
Quarter: 2004Q4

REPORT INFORMATION
  Report Type: 
  Country: None (occurrence: None)
  Receive Date: 20040928
  Receipt Date: 20040601
  Transmission Date: 20050328
  Serious: No
  Sender: FDA-Public Use
  Company Number: 04P-163-0262526-00

PATIENT
  Age: 81 Year
  Sex: Female

DRUGS (20)
  1. HUMIRA [Suspect]
     Indication: RHEUMATOID ARTHRITIS
     Dosage: 40 MG, SUBCUTANEOUS
     Route: 058
     Dates: start: 20030101
  2. OXYGEN [Concomitant]
  3. LISINOPRIL [Concomitant]
  4. HYDROXYZINE [Concomitant]
  5. SUCRALFATE [Concomitant]
  6. PREDNISONE [Concomitant]
  7. PYRIDOXINE HYDROCHLORIDE [Concomitant]
  8. HYDROCODONE [Concomitant]
  9. QUININE SULFATE [Concomitant]
  10. LEXAPRO [Concomitant]
  11. POTASSIUM [Concomitant]
  12. THEO-24 [Concomitant]
  13. SALBUTAMOL [Concomitant]
  14. MECLIZINE [Concomitant]
  15. PANTOPRAZOLE [Concomitant]
  16. SERETIDE MITE [Concomitant]
  17. CALCITONIN-SALMON [Concomitant]
  18. ALENDRONATE SODIUM [Concomitant]
  19. FENTANYL [Concomitant]
  20. OXYCOCET [Concomitant]

REACTIONS (1)
  - DRUG EFFECT DECREASED [None]
